FAERS Safety Report 10641925 (Version 1)
Quarter: 2014Q4

REPORT INFORMATION
  Report Type: Spontaneous
  Country: FR (occurrence: FR)
  Receive Date: 20141209
  Receipt Date: 20141209
  Transmission Date: 20150529
  Serious: Yes (Life-Threatening, Hospitalization, Other)
  Sender: FDA-Public Use
  Company Number: FR-PFIZER INC-2014336460

PATIENT
  Age: 18 Year
  Sex: Female

DRUGS (8)
  1. TEMERIT [Suspect]
     Active Substance: NEBIVOLOL
     Indication: SINUS TACHYCARDIA
     Dosage: UNK
  2. TERCIAN [Suspect]
     Active Substance: CYAMEMAZINE
     Dosage: 625 TO 2600 MG AS SINGLE DOSE
     Dates: start: 20141116
  3. XANAX [Suspect]
     Active Substance: ALPRAZOLAM
     Dosage: 1.25 MG, SINGLE
     Dates: start: 20141116
  4. SEROPLEX [Suspect]
     Active Substance: ESCITALOPRAM OXALATE
     Dosage: 1100 MG, SINGLE
     Dates: start: 20141116
  5. SEROPLEX [Suspect]
     Active Substance: ESCITALOPRAM OXALATE
     Dosage: UNK
  6. TEMERIT [Suspect]
     Active Substance: NEBIVOLOL
     Dosage: 170 MG, SINGLE
     Dates: start: 20141116, end: 20141116
  7. PROCORALAN [Suspect]
     Active Substance: IVABRADINE
     Dosage: 85 MG, SINGLE
     Dates: start: 20141116
  8. TERCIAN [Suspect]
     Active Substance: CYAMEMAZINE
     Dosage: UNK UNK, AS NEEDED

REACTIONS (4)
  - Poisoning deliberate [Recovered/Resolved]
  - Coma [Recovered/Resolved]
  - Hypotension [Recovered/Resolved]
  - Overdose [Recovered/Resolved]

NARRATIVE: CASE EVENT DATE: 20141116
